FAERS Safety Report 7227148-0 (Version None)
Quarter: 2011Q1

REPORT INFORMATION
  Report Type: 
  Country: None (occurrence: None)
  Receive Date: 20110111
  Receipt Date: 20110111
  Transmission Date: 20110831
  Serious: Yes (Other)
  Sender: FDA-Public Use
  Company Number: None

PATIENT
  Age: 40 Year
  Sex: Female

DRUGS (1)
  1. TRIVORA-28 [Suspect]
     Indication: CONTRACEPTION
     Dosage: ONE TABLET DAILY PO
     Route: 048

REACTIONS (4)
  - ANXIETY [None]
  - PRODUCT SUBSTITUTION ISSUE [None]
  - ABDOMINAL DISTENSION [None]
  - FEELING ABNORMAL [None]
